FAERS Safety Report 4373177-4 (Version None)
Quarter: 2004Q2

REPORT INFORMATION
  Report Type: 
  Country: None (occurrence: None)
  Receive Date: 20040603
  Receipt Date: 20040513
  Transmission Date: 20050107
  Serious: Yes (Other)
  Sender: FDA-Public Use
  Company Number: USA030843914

PATIENT
  Age: 60 Year
  Sex: Female
  Weight: 47 kg

DRUGS (12)
  1. FORTEO [Suspect]
     Indication: OSTEOPOROSIS
     Dosage: 20 UG/1 DAY
     Dates: start: 20030301
  2. NEURONTIN [Concomitant]
  3. SYNTHROID [Concomitant]
  4. PREMARIN [Concomitant]
  5. CALCIUM [Concomitant]
  6. ELAVIL [Concomitant]
  7. XANAX [Concomitant]
  8. PLAVIX [Concomitant]
  9. NEXIUM [Concomitant]
  10. VITAMIN B-12 [Concomitant]
  11. MUSCLE RELAXERS [Concomitant]
  12. VITAMINS NOS [Concomitant]

REACTIONS (16)
  - ANAEMIA [None]
  - ARTHRALGIA [None]
  - ASTHENIA [None]
  - BACK PAIN [None]
  - CONDITION AGGRAVATED [None]
  - DISCOMFORT [None]
  - DIZZINESS [None]
  - FALL [None]
  - GASTRIC DISORDER [None]
  - IMPAIRED DRIVING ABILITY [None]
  - INSOMNIA [None]
  - NECK PAIN [None]
  - PAIN IN EXTREMITY [None]
  - PHARMACEUTICAL PRODUCT COMPLAINT [None]
  - RIB FRACTURE [None]
  - VOMITING [None]
